FAERS Safety Report 18395626 (Version 1)
Quarter: 2020Q4

REPORT INFORMATION
  Report Type: Report from Study
  Country: DE (occurrence: DE)
  Receive Date: 20201017
  Receipt Date: 20201017
  Transmission Date: 20210114
  Serious: Yes (Hospitalization, Disabling)
  Sender: FDA-Public Use
  Company Number: DE-ROCHE-2673268

PATIENT
  Age: 56 Year
  Sex: Male
  Weight: 63 kg

DRUGS (10)
  1. DOCETAXEL. [Suspect]
     Active Substance: DOCETAXEL
     Indication: GASTRIC CANCER
     Dosage: ON 03/SEP/2020, HE RECEIVED LAST DOSE OF DOCETAXEL (93.50 MG) PRIOR TO CARDIAC DISORDER MYOCADIAL IN
     Route: 042
  2. OXAPLATIN [Suspect]
     Active Substance: OXALIPLATIN
     Indication: OESOPHAGEAL ADENOCARCINOMA
  3. FLUOROURACIL. [Suspect]
     Active Substance: FLUOROURACIL
     Indication: OESOPHAGEAL ADENOCARCINOMA
  4. ATEZOLIZUMAB. [Suspect]
     Active Substance: ATEZOLIZUMAB
     Indication: GASTRIC CANCER
     Dosage: ON 02/SEP/2020, HE RECEIVED THE LAST DOSE OF ATEZOLIZUMAB (840 MG) PRIOR TO CARDIAC DISORDER AND MYO
     Route: 041
  5. LEUCOVORIN. [Suspect]
     Active Substance: LEUCOVORIN
     Indication: GASTRIC CANCER
     Dosage: ON 03/SEP/2020, HE RECEIVED LAST DOSE OF LEUCOVORIN (374 MG) PRIOR TO CARDIAC DISORDER MYOCADIAL INF
     Route: 042
  6. FLUOROURACIL. [Suspect]
     Active Substance: FLUOROURACIL
     Indication: GASTRIC CANCER
     Dosage: ON 03/SEP/2020, HE RECEIVED LAST DOSE OF DOCETAXEL (4862 MG) PRIOR TO CARDIAC DISORDER MYOCADIAL INF
     Route: 042
  7. LEUCOVORIN. [Suspect]
     Active Substance: LEUCOVORIN
     Indication: OESOPHAGEAL ADENOCARCINOMA
  8. ATEZOLIZUMAB. [Suspect]
     Active Substance: ATEZOLIZUMAB
     Indication: OESOPHAGEAL ADENOCARCINOMA
  9. OXAPLATIN [Suspect]
     Active Substance: OXALIPLATIN
     Indication: GASTRIC CANCER
     Dosage: ON 03/SEP/2020, HE RECEIVED LAST DOSE OF OXALIPATIN (158.95 MG) PRIOR TO CARDIAC DISORDER MYOCADIAL
     Route: 042
  10. DOCETAXEL. [Suspect]
     Active Substance: DOCETAXEL
     Indication: OESOPHAGEAL ADENOCARCINOMA

REACTIONS (3)
  - Chills [Recovered/Resolved]
  - Pyrexia [Not Recovered/Not Resolved]
  - Myocardial infarction [Recovered/Resolved]

NARRATIVE: CASE EVENT DATE: 20200905
